FAERS Safety Report 8439432-3 (Version None)
Quarter: 2012Q2

REPORT INFORMATION
  Report Type: 
  Country: None (occurrence: None)
  Receive Date: 20120615
  Receipt Date: 20120611
  Transmission Date: 20120825
  Serious: Yes (Death, Life-Threatening, Other)
  Sender: FDA-Public Use
  Company Number: JP-PFIZER INC-2012062428

PATIENT
  Age: 69 Year
  Sex: Female
  Weight: 53.2 kg

DRUGS (11)
  1. SILDENAFIL CITRATE [Suspect]
     Indication: PULMONARY ARTERIAL HYPERTENSION
     Dosage: 20 MG, 3X/DAY
     Route: 048
     Dates: start: 20110218, end: 20110220
  2. RABEPRAZOLE SODIUM [Concomitant]
     Indication: GASTROOESOPHAGEAL REFLUX DISEASE
     Dosage: 10 MG, 1X/DAY
     Route: 048
     Dates: end: 20111222
  3. BICILLIN G [Concomitant]
     Indication: ENDOCARDITIS
     Dosage: 400000 DF, 1X/DAY
     Route: 048
     Dates: end: 20111222
  4. ALLOPURINOL [Concomitant]
     Indication: HYPERURICAEMIA
     Dosage: 100 MG, 1X/DAY
     Route: 048
     Dates: end: 20111222
  5. LASIX [Concomitant]
     Indication: CARDIAC FAILURE CHRONIC
     Dosage: 40 MG, 1X/DAY
     Route: 048
     Dates: end: 20111222
  6. DAIKENTYUTO [Concomitant]
     Indication: ABDOMINAL DISTENSION
     Dosage: 15 G, 3X/DAY
     Route: 048
     Dates: end: 20111017
  7. PRAVASTATIN SODIUM [Concomitant]
     Indication: HYPERLIPIDAEMIA
     Dosage: 10 MG, 1X/DAY
     Route: 048
     Dates: end: 20111222
  8. SILDENAFIL CITRATE [Suspect]
     Dosage: 20 MG, 2X/DAY
     Route: 048
     Dates: start: 20110221, end: 20111220
  9. ZETIA [Concomitant]
     Indication: HYPERLIPIDAEMIA
     Dosage: 10 MG, 1X/DAY
     Route: 048
     Dates: start: 20110302, end: 20111222
  10. GASMOTIN [Concomitant]
     Indication: ABDOMINAL DISTENSION
     Dosage: 15 MG, 3X/DAY
     Route: 048
     Dates: start: 20110319, end: 20111222
  11. PREDNISOLONE [Suspect]
     Indication: MICROSCOPIC POLYANGIITIS
     Dosage: 5 MG, 1X/DAY
     Route: 048

REACTIONS (6)
  - HEPATITIS A [None]
  - OESOPHAGEAL CANDIDIASIS [None]
  - GENERAL PHYSICAL HEALTH DETERIORATION [None]
  - RENAL FAILURE [None]
  - RESPIRATORY FAILURE [None]
  - INTERSTITIAL LUNG DISEASE [None]
